FAERS Safety Report 21990277 (Version 1)
Quarter: 2023Q1

REPORT INFORMATION
  Report Type: Spontaneous
  Country: ES (occurrence: ES)
  Receive Date: 20230214
  Receipt Date: 20230214
  Transmission Date: 20230418
  Serious: Yes (Other)
  Sender: FDA-Public Use
  Company Number: None

PATIENT
  Age: 65 Year
  Sex: Male
  Weight: 66 kg

DRUGS (1)
  1. JANUVIA [Suspect]
     Active Substance: SITAGLIPTIN PHOSPHATE
     Indication: Type 2 diabetes mellitus
     Dosage: A PILL DAILY
     Route: 048
     Dates: start: 2014

REACTIONS (2)
  - Diverticulum [Unknown]
  - Diverticulitis [Unknown]

NARRATIVE: CASE EVENT DATE: 20170101
